FAERS Safety Report 20840648 (Version 2)
Quarter: 2023Q1

REPORT INFORMATION
  Report Type: Spontaneous
  Country: US (occurrence: US)
  Receive Date: 20220517
  Receipt Date: 20230127
  Transmission Date: 20230418
  Serious: Yes (Death, Other)
  Sender: FDA-Public Use
  Company Number: US-PFIZER INC-202200532584

PATIENT
  Age: 72 Year
  Sex: Male

DRUGS (1)
  1. XELJANZ [Suspect]
     Active Substance: TOFACITINIB CITRATE
     Dosage: UNK

REACTIONS (2)
  - Lung disorder [Fatal]
  - Illness [Unknown]

NARRATIVE: CASE EVENT DATE: 20220401
